FAERS Safety Report 24589139 (Version 2)
Quarter: 2024Q4

REPORT INFORMATION
  Report Type: Spontaneous
  Country: CA (occurrence: CA)
  Receive Date: 20241107
  Receipt Date: 20241120
  Transmission Date: 20250114
  Serious: Yes (Other)
  Sender: ARDELYX
  Company Number: CA-ARDELYX-2024ARDX008091

PATIENT
  Age: 68 Year
  Sex: Female

DRUGS (1)
  1. IBSRELA [Suspect]
     Active Substance: TENAPANOR HYDROCHLORIDE
     Indication: Irritable bowel syndrome
     Dosage: 1 DOSAGE FORM, QD
     Route: 048
     Dates: start: 20241011, end: 20241022

REACTIONS (5)
  - Haematochezia [Recovering/Resolving]
  - Stress [Unknown]
  - Discomfort [Recovering/Resolving]
  - Abdominal distension [Recovering/Resolving]
  - Diarrhoea [Unknown]

NARRATIVE: CASE EVENT DATE: 20241001
